FAERS Safety Report 9641839 (Version 2)
Quarter: 2014Q2

REPORT INFORMATION
  Report Type: Spontaneous
  Country: US (occurrence: US)
  Receive Date: 20131023
  Receipt Date: 20140414
  Transmission Date: 20141212
  Serious: Yes (Hospitalization)
  Sender: FDA-Public Use
  Company Number: US-OTSUKA-US-2013-11281

PATIENT
  Age: 56 Year
  Sex: Male

DRUGS (9)
  1. ABILIFY MAINTENA [Suspect]
     Indication: BIPOLAR DISORDER
     Dosage: 300 MG MILLIGRAM(S), QM
     Route: 030
     Dates: start: 20130411, end: 20130515
  2. ABILIFY [Concomitant]
     Indication: BIPOLAR DISORDER
     Dosage: 15 MG MILLIGRAM(S), HS
     Route: 048
     Dates: start: 20130328, end: 20130411
  3. CELEXA [Concomitant]
     Indication: DEPRESSION
     Dosage: UNK
  4. LITHIUM ER [Concomitant]
     Indication: BIPOLAR DISORDER
     Dosage: UNK
  5. COGENTIN [Concomitant]
     Dosage: UNK
  6. ATIVAN [Concomitant]
     Indication: ANXIETY
     Dosage: UNK
  7. BENADRYL [Concomitant]
     Dosage: UNK
  8. CARDIZEM [Concomitant]
     Indication: HYPERTENSION
     Dosage: UNK
  9. ZOCOR [Concomitant]
     Indication: BLOOD CHOLESTEROL INCREASED
     Dosage: UNK

REACTIONS (9)
  - Overdose [Recovered/Resolved]
  - Confusional state [Recovered/Resolved]
  - Gait disturbance [Recovered/Resolved]
  - Speech disorder [Recovered/Resolved]
  - Disorientation [Recovered/Resolved]
  - Mental status changes [Recovered/Resolved]
  - Akathisia [Recovered/Resolved]
  - Extrapyramidal disorder [Recovered/Resolved]
  - Off label use [Unknown]
